FAERS Safety Report 10640882 (Version 1)
Quarter: 2014Q4

REPORT INFORMATION
  Report Type: Spontaneous
  Country: US (occurrence: None)
  Receive Date: 20141208
  Receipt Date: 20141208
  Transmission Date: 20150529
  Serious: Yes (Life-Threatening, Hospitalization)
  Sender: FDA-Public Use
  Company Number: None

PATIENT
  Age: 62 Year
  Sex: Female
  Weight: 108.86 kg

DRUGS (1)
  1. VANCOMYCIN [Suspect]
     Active Substance: VANCOMYCIN
     Indication: CELLULITIS

REACTIONS (8)
  - Erythema [None]
  - Pollakiuria [None]
  - Pain [None]
  - Skin exfoliation [None]
  - Blister [None]
  - Pruritus [None]
  - Pharyngeal ulceration [None]
  - Blood pressure increased [None]

NARRATIVE: CASE EVENT DATE: 20100601
